FAERS Safety Report 5830434-X (Version None)
Quarter: 2008Q3

REPORT INFORMATION
  Report Type: 
  Country: None (occurrence: None)
  Receive Date: 20080801
  Receipt Date: 20080722
  Transmission Date: 20090109
  Serious: Yes (Hospitalization)
  Sender: FDA-Public Use
  Company Number: JP-JNJFOC-20080704798

PATIENT
  Sex: Female
  Weight: 59 kg

DRUGS (23)
  1. REMICADE [Suspect]
     Route: 042
  2. REMICADE [Suspect]
     Route: 042
  3. REMICADE [Suspect]
     Route: 042
  4. REMICADE [Suspect]
     Indication: RHEUMATOID ARTHRITIS
     Route: 042
  5. PREDNISOLONE [Suspect]
     Route: 048
  6. PREDNISOLONE [Suspect]
     Indication: RHEUMATOID ARTHRITIS
     Route: 048
  7. RHEUMATREX [Suspect]
     Indication: RHEUMATOID ARTHRITIS
     Route: 048
  8. ISONIAZID [Concomitant]
     Indication: TUBERCULOSIS
  9. RIFAMPICIN [Concomitant]
     Indication: TUBERCULOSIS
  10. ETHAMBUTOL HCL [Concomitant]
     Indication: TUBERCULOSIS
  11. ADALAT [Concomitant]
     Route: 048
  12. ADALAT [Concomitant]
     Indication: HYPERTENSION
     Route: 048
  13. BEZATOL [Concomitant]
     Route: 048
  14. BEZATOL [Concomitant]
     Indication: LIPID METABOLISM DISORDER
     Route: 048
  15. ALENDRONATE SODIUM [Concomitant]
     Indication: OSTEOPOROSIS
     Route: 048
  16. LANSOPRAZOLE [Concomitant]
     Route: 048
  17. LANSOPRAZOLE [Concomitant]
     Route: 048
  18. ALFAROL [Concomitant]
     Route: 048
  19. ALFAROL [Concomitant]
     Route: 048
  20. MUCOSTA [Concomitant]
     Route: 048
  21. MUCOSTA [Concomitant]
     Route: 048
  22. LORAZEPAM [Concomitant]
     Route: 048
  23. LORAZEPAM [Concomitant]
     Route: 048

REACTIONS (2)
  - PYREXIA [None]
  - TUBERCULOUS PLEURISY [None]
